FAERS Safety Report 7451089-7 (Version None)
Quarter: 2011Q2

REPORT INFORMATION
  Report Type: 
  Country: None (occurrence: None)
  Receive Date: 20110429
  Receipt Date: 20110429
  Transmission Date: 20111010
  Serious: Yes (Hospitalization)
  Sender: FDA-Public Use
  Company Number: None

PATIENT
  Age: 34 Year
  Sex: Female
  Weight: 105.7 kg

DRUGS (5)
  1. TYLENOL PM [Suspect]
     Dosage: RECENT
  2. MAXALT [Concomitant]
  3. ZOLOFT [Suspect]
     Indication: ANXIETY
     Dosage: 2 TABS (40MG DAILY PO RECENT
     Route: 048
  4. HYDROCODONE BITARTRATE [Suspect]
     Indication: HEADACHE
     Dosage: 1 TAB Q6-8HR PRN PO  RECENT
     Route: 048
  5. VICODIN [Concomitant]

REACTIONS (7)
  - EYE DISORDER [None]
  - TREMOR [None]
  - STRESS [None]
  - CONDITION AGGRAVATED [None]
  - MENTAL STATUS CHANGES [None]
  - SPEECH DISORDER [None]
  - ANXIETY [None]
